FAERS Safety Report 20641849 (Version 1)
Quarter: 2022Q1

REPORT INFORMATION
  Report Type: Spontaneous
  Country: SA (occurrence: None)
  Receive Date: 20220328
  Receipt Date: 20220328
  Transmission Date: 20220423
  Serious: Yes (Other)
  Sender: FDA-Public Use
  Company Number: SA-ROCHE-3057477

PATIENT
  Age: 34 Year
  Sex: Male

DRUGS (1)
  1. OCREVUS [Suspect]
     Active Substance: OCRELIZUMAB
     Indication: Multiple sclerosis
     Route: 065
     Dates: start: 201909

REACTIONS (5)
  - Neutropenia [Unknown]
  - Leukopenia [Unknown]
  - Night sweats [Unknown]
  - Weight decreased [Unknown]
  - Neutrophil count decreased [Unknown]
